FAERS Safety Report 4411076-X (Version None)
Quarter: 2004Q2

REPORT INFORMATION
  Report Type: 
  Country: None (occurrence: None)
  Receive Date: 20040630
  Receipt Date: 20040420
  Transmission Date: 20050107
  Serious: No
  Sender: FDA-Public Use
  Company Number: 04P-163-0258024-00

PATIENT
  Age: 47 Year
  Sex: Female
  Weight: 58.9676 kg

DRUGS (9)
  1. HUMIRA [Suspect]
     Indication: RHEUMATOID ARTHRITIS
     Dosage: 40 MG, 1 IN 2 WK, SUBCUTANEOUS
     Route: 058
     Dates: start: 20030801
  2. LEVOTHYROXINE SODIUM [Concomitant]
  3. METHOTREXATE SODIUM [Concomitant]
  4. VITAMIN B COMPLEX CAP [Concomitant]
  5. ESTRAVIN [Concomitant]
  6. PARACETAMOL [Concomitant]
  7. METHADONE HCL [Concomitant]
  8. HYDROCODONE [Concomitant]
  9. MUSCLE RELAXANTS [Concomitant]

REACTIONS (4)
  - PRURITUS [None]
  - RASH ERYTHEMATOUS [None]
  - RASH PAPULAR [None]
  - RASH PUSTULAR [None]
